FAERS Safety Report 5966210-7 (Version None)
Quarter: 2008Q4

REPORT INFORMATION
  Report Type: 
  Country: None (occurrence: None)
  Receive Date: 20081125
  Receipt Date: 20081113
  Transmission Date: 20090506
  Serious: Yes (Hospitalization)
  Sender: FDA-Public Use
  Company Number: ES-ELI_LILLY_AND_COMPANY-ES200811003620

PATIENT
  Sex: Female

DRUGS (6)
  1. CYMBALTA [Suspect]
     Indication: DEPRESSION
     Dosage: 60 MG, UNKNOWN
     Route: 048
  2. CYMBALTA [Suspect]
     Dosage: 30 MG, UNKNOWN
     Route: 048
  3. DAFLON /00426001/ [Concomitant]
     Dosage: UNK, UNKNOWN
     Route: 065
  4. LANTANON [Concomitant]
     Dosage: UNK, UNKNOWN
     Route: 065
  5. SERC /00034201/ [Concomitant]
     Dosage: UNK, UNKNOWN
     Route: 065
  6. HIDROSALURETIL [Concomitant]
     Dosage: UNK, UNKNOWN
     Route: 065

REACTIONS (3)
  - HYPERHIDROSIS [None]
  - MAJOR DEPRESSION [None]
  - PERSONALITY DISORDER [None]
